FAERS Safety Report 18727158 (Version 3)
Quarter: 2021Q2

REPORT INFORMATION
  Report Type: Spontaneous
  Country: AR (occurrence: AR)
  Receive Date: 20210111
  Receipt Date: 20210503
  Transmission Date: 20210717
  Serious: Yes (Other)
  Sender: FDA-Public Use
  Company Number: AR-PFIZER INC-2021010111

PATIENT
  Age: 58 Year
  Sex: Male

DRUGS (1)
  1. INLYTA [Suspect]
     Active Substance: AXITINIB
     Indication: RENAL CANCER
     Dosage: 5 MG, DAILY
     Dates: start: 20200624, end: 202104

REACTIONS (7)
  - Gait inability [Recovered/Resolved]
  - Off label use [Unknown]
  - Burning sensation [Recovered/Resolved]
  - Aphonia [Recovered/Resolved]
  - Intentional product use issue [Unknown]
  - COVID-19 [Unknown]
  - Blister [Not Recovered/Not Resolved]

NARRATIVE: CASE EVENT DATE: 2020
